FAERS Safety Report 9790025 (Version 4)
Quarter: 2018Q4

REPORT INFORMATION
  Report Type: Spontaneous
  Country: None (occurrence: JP)
  Receive Date: 20131231
  Receipt Date: 20181116
  Transmission Date: 20190205
  Serious: Yes (Hospitalization, Other)
  Sender: FDA-Public Use
  Company Number: JP-FRI-1000052568

PATIENT
  Age: 69 Year
  Sex: Male

DRUGS (7)
  1. ACAMPROSATE CALCIUM - BP [Suspect]
     Active Substance: ACAMPROSATE CALCIUM
     Indication: ALCOHOLISM
     Dosage: 1998 MG, QD; 333 MILLIGRAM FIBRINOGEN EQUIVALENT UNIT PER LITRE
     Route: 048
     Dates: start: 20130530, end: 20130628
  2. COUGHNOL [Concomitant]
     Active Substance: AMBROXOL HYDROCHLORIDE
     Dosage: UNK
     Dates: start: 20130430, end: 20130628
  3. MUCOSTA [Concomitant]
     Active Substance: REBAMIPIDE
     Dosage: UNK
     Dates: start: 20121227, end: 20130628
  4. EVAMYL [Concomitant]
     Active Substance: LORMETAZEPAM
     Dosage: UNK
     Dates: start: 20121220, end: 20130628
  5. NITRAZEPAM [Concomitant]
     Active Substance: NITRAZEPAM
     Dosage: UNK
     Dates: start: 20121220, end: 20130628
  6. CLARITIN [Concomitant]
     Active Substance: LORATADINE
     Dosage: UNK
     Dates: start: 20121226, end: 20130628
  7. NOCBIN [Concomitant]
     Active Substance: DISULFIRAM
     Dosage: UNK
     Dates: start: 20130530, end: 20130628

REACTIONS (1)
  - Delirium [Recovered/Resolved]

NARRATIVE: CASE EVENT DATE: 20130611
